FAERS Safety Report 17638733 (Version 2)
Quarter: 2020Q3

REPORT INFORMATION
  Report Type: Spontaneous
  Country: US (occurrence: US)
  Receive Date: 20200407
  Receipt Date: 20200810
  Transmission Date: 20201102
  Serious: No
  Sender: FDA-Public Use
  Company Number: US-SA-2020SA084036

PATIENT

DRUGS (3)
  1. AUBAGIO [Suspect]
     Active Substance: TERIFLUNOMIDE
     Indication: MULTIPLE SCLEROSIS
     Dosage: 14 MG, QD
     Route: 048
     Dates: start: 20190906
  2. AUBAGIO [Suspect]
     Active Substance: TERIFLUNOMIDE
     Indication: ASTHENIA
  3. AUBAGIO [Suspect]
     Active Substance: TERIFLUNOMIDE
     Indication: DEMYELINATION

REACTIONS (9)
  - Product dose omission issue [Unknown]
  - Depression [Unknown]
  - Product use in unapproved indication [Unknown]
  - Slow speech [Unknown]
  - Drug ineffective [Unknown]
  - Condition aggravated [Unknown]
  - Visual impairment [Unknown]
  - Gait disturbance [Unknown]
  - Fatigue [Unknown]
